FAERS Safety Report 6442896-8 (Version None)
Quarter: 2009Q4

REPORT INFORMATION
  Report Type: 
  Country: None (occurrence: None)
  Receive Date: 20091117
  Receipt Date: 20091109
  Transmission Date: 20100525
  Serious: Yes (Other)
  Sender: FDA-Public Use
  Company Number: US-ROCHE-668086

PATIENT
  Age: 10 Year
  Sex: Female

DRUGS (7)
  1. DACLIZUMAB [Suspect]
     Dosage: ADMINISTERED AT BASELINE; FORM: INFUSION
     Route: 042
  2. DACLIZUMAB [Suspect]
     Dosage: ADMINISTERED AT WEEK 2 AS INDUCTION
     Route: 042
  3. DACLIZUMAB [Suspect]
     Dosage: ADMINISTERED AT WEEK 4
     Route: 042
  4. MYCOPHENOLATE MOFETIL [Suspect]
     Route: 065
  5. AZATHIOPRINE [Suspect]
     Route: 065
  6. METHOTREXATE [Suspect]
     Route: 065
  7. PRED FORTE [Concomitant]
     Dosage: THREE TIMES A DAY IN RIGHT EYE FOR SIX DAYS  AND TWO TIMES A DAY IN LEFT EYE FOR THREE DAYS

REACTIONS (2)
  - ECZEMA [None]
  - MACULAR OEDEMA [None]
